FAERS Safety Report 5829662-9 (Version None)
Quarter: 2008Q3

REPORT INFORMATION
  Report Type: 
  Country: None (occurrence: None)
  Receive Date: 20080729
  Receipt Date: 20080715
  Transmission Date: 20090109
  Serious: Yes (Hospitalization)
  Sender: FDA-Public Use
  Company Number: 2008AL008236

PATIENT
  Age: 52 Year
  Sex: Female

DRUGS (4)
  1. DIAZEPAM [Suspect]
     Indication: DRUG DETOXIFICATION
     Dosage: 12.5 MG;QD;PO
     Route: 048
     Dates: start: 20080409
  2. LYRICA [Concomitant]
  3. PAROXETINE HCL [Concomitant]
  4. PROTHIPENDYL HCL [Concomitant]

REACTIONS (1)
  - APHASIA [None]
